FAERS Safety Report 6314500-0 (Version None)
Quarter: 2009Q3

REPORT INFORMATION
  Report Type: 
  Country: None (occurrence: None)
  Receive Date: 20090817
  Receipt Date: 20090817
  Transmission Date: 20100115
  Serious: No
  Sender: FDA-Public Use
  Company Number: None

PATIENT
  Age: 17 Year
  Sex: Female

DRUGS (1)
  1. SODIUM CHLORIDE 0.9% [Suspect]
     Indication: ECHOCARDIOGRAM
     Dosage: 10 ML 1X ONLY IV
     Route: 042
     Dates: start: 20090811, end: 20090811

REACTIONS (1)
  - COUGH [None]
